FAERS Safety Report 11132192 (Version 1)
Quarter: 2015Q2

REPORT INFORMATION
  Report Type: Spontaneous
  Country: US (occurrence: US)
  Receive Date: 20150522
  Receipt Date: 20150522
  Transmission Date: 20150821
  Serious: Yes (Hospitalization)
  Sender: FDA-Public Use
  Company Number: US-SA-2015SA068745

PATIENT
  Sex: Female

DRUGS (6)
  1. NOVOLOG [Concomitant]
     Active Substance: INSULIN ASPART
     Dosage: DOSE:6 UNIT(S)
     Dates: start: 1995
  2. PREDNISONE. [Concomitant]
     Active Substance: PREDNISONE
  3. COMBIGAN [Concomitant]
     Active Substance: BRIMONIDINE TARTRATE\TIMOLOL MALEATE
     Indication: GLAUCOMA
     Dates: start: 2004
  4. ASPIRIN ^BAYER^ [Concomitant]
     Active Substance: ASPIRIN
  5. XALATAN [Concomitant]
     Active Substance: LATANOPROST
     Indication: GLAUCOMA
     Dates: start: 2004
  6. LANTUS [Suspect]
     Active Substance: INSULIN GLARGINE
     Dosage: DOSE:16 UNIT(S)
     Route: 065

REACTIONS (2)
  - Diabetes mellitus [Recovered/Resolved]
  - Sarcoidosis [Recovered/Resolved]
